FAERS Safety Report 4804587-6 (Version None)
Quarter: 2005Q4

REPORT INFORMATION
  Report Type: 
  Country: None (occurrence: None)
  Receive Date: 20051020
  Receipt Date: 20051007
  Transmission Date: 20060501
  Serious: Yes (Disabling)
  Sender: FDA-Public Use
  Company Number: 2005AC01604

PATIENT
  Age: 81 Year
  Sex: Male

DRUGS (10)
  1. ZESTRIL [Suspect]
     Indication: HYPERTENSION
     Route: 048
     Dates: start: 20050101, end: 20051001
  2. ZESTRIL [Suspect]
     Indication: CARDIAC FAILURE
     Route: 048
     Dates: start: 20050101, end: 20051001
  3. ASAFLOW [Concomitant]
  4. ISILUNG [Concomitant]
  5. XANTHIUM [Concomitant]
  6. CORDARONE [Concomitant]
  7. ELTHYRONE [Concomitant]
  8. DUOVENT AEROSOL [Concomitant]
  9. SEREVENT PUFF [Concomitant]
  10. FLIXOTIDE [Concomitant]

REACTIONS (1)
  - MYOCLONUS [None]
